FAERS Safety Report 21018333 (Version 1)
Quarter: 2022Q2

REPORT INFORMATION
  Report Type: Report from Study
  Country: CA (occurrence: CA)
  Receive Date: 20220628
  Receipt Date: 20220628
  Transmission Date: 20220720
  Serious: Yes (Other)
  Sender: FDA-Public Use
  Company Number: CA-AMGEN-CANSL2022093099

PATIENT
  Age: 9 Year
  Sex: Female

DRUGS (1)
  1. ADALIMUMAB [Suspect]
     Active Substance: ADALIMUMAB
     Indication: Juvenile idiopathic arthritis
     Dosage: 20 MILLIGRAM, QWK
     Route: 065
     Dates: start: 20220226, end: 2022

REACTIONS (2)
  - Leukaemia [Unknown]
  - Off label use [Unknown]
